FAERS Safety Report 5158483-8 (Version None)
Quarter: 2006Q4

REPORT INFORMATION
  Report Type: 
  Country: None (occurrence: None)
  Receive Date: 20061128
  Receipt Date: 20060901
  Transmission Date: 20070319
  Serious: Yes (Other)
  Sender: FDA-Public Use
  Company Number: US-ELI_LILLY_AND_COMPANY-US200609001079

PATIENT
  Sex: Female
  Weight: 72.562 kg

DRUGS (1)
  1. ZYPREXA [Suspect]
     Dosage: UNK, 3/D
     Dates: start: 19970101

REACTIONS (13)
  - ACETONAEMIA [None]
  - BLOOD CHOLESTEROL ABNORMAL [None]
  - CARDIAC OPERATION [None]
  - DIABETES MELLITUS [None]
  - DIABETIC COMA [None]
  - DIABETIC KETOACIDOSIS [None]
  - HYPERGLYCAEMIC HYPEROSMOLAR NONKETOTIC SYNDROME [None]
  - KETONURIA [None]
  - LIVER DISORDER [None]
  - METABOLIC DISORDER [None]
  - MYOCARDIAL ISCHAEMIA [None]
  - OBESITY [None]
  - WEIGHT INCREASED [None]
